FAERS Safety Report 4497129-9 (Version None)
Quarter: 2004Q4

REPORT INFORMATION
  Report Type: 
  Country: None (occurrence: None)
  Receive Date: 20041110
  Receipt Date: 20040916
  Transmission Date: 20050328
  Serious: Yes (Hospitalization, Other)
  Sender: FDA-Public Use
  Company Number: PHFR2004GB03519

PATIENT
  Age: 62 Year
  Sex: Male

DRUGS (1)
  1. CLOZARIL [Suspect]
     Indication: SCHIZOPHRENIA
     Dosage: 350MG/DAY
     Route: 048
     Dates: start: 19990208

REACTIONS (17)
  - ASTHENIA [None]
  - BRAIN SCAN ABNORMAL [None]
  - CEREBROVASCULAR DISORDER [None]
  - CONDITION AGGRAVATED [None]
  - DEMYELINATION [None]
  - EXTRAPYRAMIDAL DISORDER [None]
  - GENERAL PHYSICAL HEALTH DETERIORATION [None]
  - HEMIPARESIS [None]
  - HYPERTONIA [None]
  - IMMOBILE [None]
  - INCONTINENCE [None]
  - INFARCTION [None]
  - MUSCLE RIGIDITY [None]
  - NEUROLOGICAL SYMPTOM [None]
  - PARKINSONISM [None]
  - SPEECH DISORDER [None]
  - VASCULITIS [None]
